FAERS Safety Report 6696195-X (Version None)
Quarter: 2010Q2

REPORT INFORMATION
  Report Type: 
  Country: None (occurrence: None)
  Receive Date: 20100422
  Receipt Date: 20100412
  Transmission Date: 20101027
  Serious: Yes (Death, Other)
  Sender: FDA-Public Use
  Company Number: WAES 1004USA02228

PATIENT
  Age: 65 Year
  Sex: Male

DRUGS (2)
  1. INJ PRIMAXIN (IMIPENEM/CILASTATIN SODIUM) [Suspect]
     Dosage: IV
     Route: 042
  2. CUBICIN [Suspect]
     Indication: DEVICE RELATED INFECTION
     Dosage: IV
     Route: 042
     Dates: start: 20100309, end: 20100315

REACTIONS (3)
  - HEPATITIS [None]
  - MULTI-ORGAN DISORDER [None]
  - SEPTIC SHOCK [None]
